FAERS Safety Report 10018770 (Version 2)
Quarter: 2014Q2

REPORT INFORMATION
  Report Type: Spontaneous
  Country: US (occurrence: US)
  Receive Date: 20140318
  Receipt Date: 20140428
  Transmission Date: 20141212
  Serious: Yes (Death)
  Sender: FDA-Public Use
  Company Number: US-ALEXION PHARMACEUTICALS INC.-A201400584

PATIENT
  Sex: 0

DRUGS (3)
  1. SOLIRIS 300MG [Suspect]
     Indication: HAEMOLYTIC URAEMIC SYNDROME
     Dosage: 600 MG, UNK
     Route: 042
     Dates: start: 20140211, end: 20140211
  2. SOLIRIS 300MG [Suspect]
     Indication: ESCHERICHIA TEST POSITIVE
  3. SOLIRIS 300MG [Suspect]
     Indication: OFF LABEL USE

REACTIONS (3)
  - Escherichia test positive [Fatal]
  - Haemolytic uraemic syndrome [Fatal]
  - Off label use [Unknown]
